FAERS Safety Report 6359009-3 (Version None)
Quarter: 2009Q3

REPORT INFORMATION
  Report Type: 
  Country: None (occurrence: None)
  Receive Date: 20090917
  Receipt Date: 20090909
  Transmission Date: 20100115
  Serious: Yes (Other)
  Sender: FDA-Public Use
  Company Number: US-JNJCH-2009024351

PATIENT
  Age: 1 Year
  Sex: Female

DRUGS (1)
  1. CHILDREN'S BENADRYL ALLERGY CHERRY LIQUID [Suspect]
     Indication: ACCIDENTAL EXPOSURE
     Dosage: TEXT:ONCE
     Route: 048
     Dates: start: 20090909, end: 20090909

REACTIONS (3)
  - ACCIDENTAL DRUG INTAKE BY CHILD [None]
  - LETHARGY [None]
  - OVERDOSE [None]
